FAERS Safety Report 20729688 (Version 2)
Quarter: 2022Q2

REPORT INFORMATION
  Report Type: Spontaneous
  Country: US (occurrence: US)
  Receive Date: 20220420
  Receipt Date: 20220427
  Transmission Date: 20220721
  Serious: Yes (Other)
  Sender: FDA-Public Use
  Company Number: US-BAUSCH-BL-2022-009276

PATIENT
  Age: 23 Year
  Sex: Male

DRUGS (22)
  1. SOLODYN [Suspect]
     Active Substance: MINOCYCLINE HYDROCHLORIDE
     Indication: Acne
     Route: 065
  2. SOLODYN [Suspect]
     Active Substance: MINOCYCLINE HYDROCHLORIDE
     Route: 048
  3. SOLODYN [Suspect]
     Active Substance: MINOCYCLINE HYDROCHLORIDE
     Route: 048
  4. SOLODYN [Suspect]
     Active Substance: MINOCYCLINE HYDROCHLORIDE
     Route: 048
  5. SOLODYN [Suspect]
     Active Substance: MINOCYCLINE HYDROCHLORIDE
     Route: 065
  6. DOXYCYCLINE [Suspect]
     Active Substance: DOXYCYCLINE
     Indication: Acne
     Dosage: DORYX, EXTENDED RELEASE
     Route: 065
  7. DOXYCYCLINE [Suspect]
     Active Substance: DOXYCYCLINE
     Dosage: DORYX. TAKE 1 TO 2 PILLS DAILY WITH FOOD AND WATER.
     Route: 048
  8. DOXYCYCLINE [Suspect]
     Active Substance: DOXYCYCLINE
     Route: 048
  9. ACZONE [Concomitant]
     Active Substance: DAPSONE
     Indication: Acne
     Route: 061
  10. ACZONE [Concomitant]
     Active Substance: DAPSONE
     Dosage: APPLY TWICE DAILY
     Route: 061
  11. ACZONE [Concomitant]
     Active Substance: DAPSONE
     Route: 061
  12. EPIDUO FORTE [Concomitant]
     Active Substance: ADAPALENE\BENZOYL PEROXIDE
     Indication: Product used for unknown indication
     Dosage: 0.3-2.5 %. APPLY TO FACE NIGHTLY.
     Route: 061
  13. PANOXYL [Concomitant]
     Active Substance: BENZOYL PEROXIDE
     Indication: Product used for unknown indication
  14. ABSORICA [Concomitant]
     Active Substance: ISOTRETINOIN
     Indication: Product used for unknown indication
     Dosage: 1 PILL DAILY WITH FATTY MEAL.
     Route: 048
  15. SULFACETAMIDE SODIUM\SULFUR [Concomitant]
     Active Substance: SULFACETAMIDE SODIUM\SULFUR
     Indication: Product used for unknown indication
     Dosage: PLEXION -CLEANSER
  16. TAZORAC [Concomitant]
     Active Substance: TAZAROTENE
     Indication: Product used for unknown indication
     Dosage: QHS (EVERY NIGHT AT BEDTIME.)
  17. TAZORAC [Concomitant]
     Active Substance: TAZAROTENE
     Dosage: QHS (EVERY NIGHT AT BEDTIME.)
  18. ZIANA [Concomitant]
     Active Substance: CLINDAMYCIN PHOSPHATE\TRETINOIN
     Indication: Product used for unknown indication
     Dosage: Q.H.S. / EVERY NIGHT AT BEDTIME.
  19. TRIAZ [Concomitant]
     Active Substance: BENZOYL PEROXIDE
     Indication: Product used for unknown indication
  20. BPO [Concomitant]
     Active Substance: BENZOYL PEROXIDE
     Indication: Product used for unknown indication
     Dosage: BPO CLOTHES- CLEANSER.
  21. IBUPROFEN [Concomitant]
     Active Substance: IBUPROFEN
     Indication: Chest pain
     Dosage: PRN
  22. SCOPOLAMINE [Concomitant]
     Active Substance: SCOPOLAMINE
     Indication: Chest pain
     Dosage: SCOPOLAMINE. EXTENDED RELEASE TABLET

REACTIONS (14)
  - Blood creatine phosphokinase increased [Unknown]
  - Papule [Recovering/Resolving]
  - Pustule [Recovering/Resolving]
  - Scar [Recovering/Resolving]
  - Dermal cyst [Unknown]
  - Nodule [Unknown]
  - Acne [Unknown]
  - Protein total increased [Unknown]
  - Eosinophil count increased [Unknown]
  - Aspartate aminotransferase increased [Unknown]
  - Alanine aminotransferase increased [Unknown]
  - Blood cholesterol increased [Unknown]
  - Blood triglycerides increased [Unknown]
  - Insurance issue [Unknown]
